FAERS Safety Report 6968609-9 (Version None)
Quarter: 2010Q3

REPORT INFORMATION
  Report Type: 
  Country: None (occurrence: None)
  Receive Date: 20100907
  Receipt Date: 20100826
  Transmission Date: 20110219
  Serious: Yes (Hospitalization)
  Sender: FDA-Public Use
  Company Number: US-ASTRAZENECA-2010SE40282

PATIENT
  Age: 27450 Day
  Sex: Female
  Weight: 83.5 kg

DRUGS (14)
  1. ATACAND HCT [Suspect]
     Indication: HYPERTENSION
     Route: 048
     Dates: start: 20080805
  2. ATACAND HCT [Suspect]
     Route: 048
     Dates: start: 20090410
  3. STUDY PROCEDURE [Suspect]
     Indication: HYPERTENSION
     Route: 065
     Dates: start: 20080805
  4. GLIPIZIDE [Concomitant]
  5. FLUTICASONE PROPIONATE [Concomitant]
  6. ALBUTEROL [Concomitant]
  7. ASPIRIN [Concomitant]
  8. NITROGLYCERIN [Concomitant]
  9. SIMVASTATIN [Concomitant]
  10. ACETAMINOPHEN [Concomitant]
  11. VITAMIN D [Concomitant]
  12. MORPHINE [Concomitant]
  13. MAALOX [Concomitant]
  14. LEVAQUIN [Concomitant]

REACTIONS (1)
  - ATRIAL FIBRILLATION [None]
